FAERS Safety Report 7367482-7 (Version None)
Quarter: 2011Q1

REPORT INFORMATION
  Report Type: 
  Country: None (occurrence: None)
  Receive Date: 20110322
  Receipt Date: 20110316
  Transmission Date: 20110831
  Serious: Yes (Other)
  Sender: FDA-Public Use
  Company Number: US-PFIZER INC-2007066694

PATIENT
  Sex: Female
  Weight: 59.09 kg

DRUGS (5)
  1. LYRICA [Suspect]
     Indication: NERVE COMPRESSION
     Dosage: UNK
     Dates: start: 20070401
  2. FOSAMAX [Concomitant]
  3. NEURONTIN [Suspect]
     Indication: NEURALGIA
     Dosage: EVERYDAY
     Dates: start: 20020101
  4. NEURONTIN [Suspect]
     Indication: NERVE COMPRESSION
  5. LYRICA [Suspect]
     Indication: NEURALGIA
     Dates: start: 20070401, end: 20070719

REACTIONS (4)
  - VISION BLURRED [None]
  - VISUAL IMPAIRMENT [None]
  - BREAST ENLARGEMENT [None]
  - ALOPECIA [None]
